FAERS Safety Report 4958305-1 (Version None)
Quarter: 2006Q1

REPORT INFORMATION
  Report Type: 
  Country: None (occurrence: None)
  Receive Date: 20060329
  Receipt Date: 20060329
  Transmission Date: 20060701
  Serious: Yes (Hospitalization)
  Sender: FDA-Public Use
  Company Number: None

PATIENT
  Age: 75 Year
  Sex: Male
  Weight: 128 kg

DRUGS (9)
  1. WARFARIN 5 MG [Suspect]
     Indication: ATRIAL FLUTTER
     Dosage: 5 MG QD PO
     Route: 048
  2. RANITIDINE [Concomitant]
  3. LABETALOL HCL [Concomitant]
  4. FELODIPINE [Concomitant]
  5. INSULIN [Concomitant]
  6. CLONIDINE [Concomitant]
  7. GLYBURIDE [Concomitant]
  8. ALLOPURINOL [Concomitant]
  9. FERROUS SULFATE TAB [Concomitant]

REACTIONS (5)
  - ANAEMIA [None]
  - GASTRITIS [None]
  - INTERNATIONAL NORMALISED RATIO INCREASED [None]
  - OEDEMA PERIPHERAL [None]
  - RENAL FAILURE ACUTE [None]
